FAERS Safety Report 7802008-2 (Version None)
Quarter: 2011Q4

REPORT INFORMATION
  Report Type: 
  Country: None (occurrence: None)
  Receive Date: 20111007
  Receipt Date: 20111005
  Transmission Date: 20120403
  Serious: Yes (Death, Hospitalization, Other)
  Sender: FDA-Public Use
  Company Number: PHFR2005IE03374

PATIENT
  Sex: Female

DRUGS (9)
  1. CLOZAPINE [Suspect]
     Indication: SCHIZOPHRENIA
     Dosage: 425 MG, UNK
     Route: 048
     Dates: start: 20040413
  2. CHEMOTHERAPEUTICS,OTHER [Concomitant]
     Indication: NON-SMALL CELL LUNG CANCER
     Dosage: UNK DF, UNK
     Route: 065
     Dates: end: 20101001
  3. VALPROATE SODIUM [Concomitant]
     Dosage: UNK DF, UNK
  4. PROPRANOLOL [Concomitant]
     Indication: ANXIETY
     Dosage: 45 MG, UNK
     Route: 048
     Dates: start: 20020101
  5. ALIMTA [Concomitant]
     Indication: METASTASES TO BONE
     Dosage: UNK DF, UNK
  6. ORAMORPH SR [Concomitant]
  7. CITALOPRAM HYDROBROMIDE [Concomitant]
     Indication: DEPRESSION
     Dosage: 60 MG, UNK
     Route: 048
     Dates: start: 20030101
  8. ANALGESICS [Concomitant]
  9. STEROIDS NOS [Concomitant]

REACTIONS (12)
  - EPILEPSY [None]
  - BRAIN NEOPLASM [None]
  - WHITE BLOOD CELL COUNT DECREASED [None]
  - CONVULSION [None]
  - MALAISE [None]
  - NON-SMALL CELL LUNG CANCER METASTATIC [None]
  - METASTASES TO LYMPH NODES [None]
  - THROMBOCYTOPENIA [None]
  - LUNG ADENOCARCINOMA METASTATIC [None]
  - METASTASES TO BONE [None]
  - NEUTROPHIL COUNT DECREASED [None]
  - DYSPNOEA [None]
